FAERS Safety Report 8803816 (Version 3)
Quarter: 2013Q1

REPORT INFORMATION
  Report Type: Spontaneous
  Country: US (occurrence: US)
  Receive Date: 20120924
  Receipt Date: 20130116
  Transmission Date: 20140127
  Serious: No
  Sender: FDA-Public Use
  Company Number: US-009507513-1209USA006173

PATIENT
  Age: 28 Year
  Sex: Female

DRUGS (1)
  1. IMPLANON [Suspect]
     Indication: CONTRACEPTION
     Dosage: UNK
     Dates: start: 20100721

REACTIONS (5)
  - Paraesthesia [Not Recovered/Not Resolved]
  - Implant site pain [Not Recovered/Not Resolved]
  - Device breakage [Not Recovered/Not Resolved]
  - Device dislocation [Not Recovered/Not Resolved]
  - Discomfort [Unknown]
